FAERS Safety Report 6766252-8 (Version None)
Quarter: 2010Q2

REPORT INFORMATION
  Report Type: 
  Country: None (occurrence: None)
  Receive Date: 20100611
  Receipt Date: 20100604
  Transmission Date: 20101027
  Serious: Yes (Hospitalization, Other)
  Sender: FDA-Public Use
  Company Number: US-SANOFI-AVENTIS-2010SA014345

PATIENT
  Age: 79 Year
  Sex: Female
  Weight: 72.27 kg

DRUGS (17)
  1. MULTAQ [Suspect]
     Route: 048
     Dates: start: 20100218, end: 20100406
  2. LASIX [Concomitant]
     Route: 048
  3. DYAZIDE [Concomitant]
  4. LIPITOR [Concomitant]
     Route: 048
     Dates: start: 20000101
  5. ATENOLOL [Concomitant]
     Dates: start: 20010101
  6. ATENOLOL [Concomitant]
     Route: 048
  7. COUMADIN [Concomitant]
     Dosage: TAKE AS DIRECTED
     Route: 048
  8. AVAPRO [Concomitant]
     Route: 048
     Dates: start: 20080101
  9. CLONIDINE [Concomitant]
     Dosage: 0.2 MG/24 HR PATCH WEEKLY, TAKE AS DIRECTED
     Route: 062
  10. FISH OIL [Concomitant]
     Dosage: 300-500 MG AS DIRECTED
     Route: 048
  11. FOLIC ACID [Concomitant]
     Route: 048
  12. VITAMIN D [Concomitant]
     Dosage: DOSE:400 UNIT(S)
     Route: 048
  13. CALCIUM CARBONATE [Concomitant]
     Route: 048
  14. POTASSIUM [Concomitant]
     Route: 048
  15. ASPIRIN [Concomitant]
     Route: 048
  16. CARVEDILOL [Concomitant]
  17. COENZYME Q10 [Concomitant]
     Route: 048

REACTIONS (8)
  - ATRIAL FIBRILLATION [None]
  - ATRIOVENTRICULAR BLOCK FIRST DEGREE [None]
  - BRAIN NATRIURETIC PEPTIDE INCREASED [None]
  - CARDIAC FAILURE CONGESTIVE [None]
  - DYSPNOEA [None]
  - MUSCLE SPASMS [None]
  - OEDEMA PERIPHERAL [None]
  - SINUS BRADYCARDIA [None]
